FAERS Safety Report 25556991 (Version 4)
Quarter: 2025Q3

REPORT INFORMATION
  Report Type: Spontaneous
  Country: EU (occurrence: EU)
  Receive Date: 20250715
  Receipt Date: 20250820
  Transmission Date: 20251020
  Serious: Yes (Other)
  Sender: MYLAN
  Company Number: EU-002147023-NVSC2025PL099930

PATIENT
  Age: 60 Year
  Sex: Female

DRUGS (32)
  1. EVEROLIMUS [Suspect]
     Active Substance: EVEROLIMUS
     Indication: Breast cancer
  2. EVEROLIMUS [Suspect]
     Active Substance: EVEROLIMUS
     Indication: Metastasis
     Route: 065
  3. EVEROLIMUS [Suspect]
     Active Substance: EVEROLIMUS
     Route: 065
  4. EVEROLIMUS [Suspect]
     Active Substance: EVEROLIMUS
  5. ZOLEDRONIC ACID [Suspect]
     Active Substance: ZOLEDRONIC ACID
     Indication: Breast cancer
  6. ZOLEDRONIC ACID [Suspect]
     Active Substance: ZOLEDRONIC ACID
     Route: 065
  7. ZOLEDRONIC ACID [Suspect]
     Active Substance: ZOLEDRONIC ACID
     Route: 065
  8. ZOLEDRONIC ACID [Suspect]
     Active Substance: ZOLEDRONIC ACID
  9. FULVESTRANT [Suspect]
     Active Substance: FULVESTRANT
     Indication: Breast cancer
  10. FULVESTRANT [Suspect]
     Active Substance: FULVESTRANT
     Indication: HER2 positive breast cancer
     Route: 065
  11. FULVESTRANT [Suspect]
     Active Substance: FULVESTRANT
     Indication: Metastasis
     Route: 065
  12. FULVESTRANT [Suspect]
     Active Substance: FULVESTRANT
  13. DOXORUBICIN [Suspect]
     Active Substance: DOXORUBICIN
     Indication: Breast cancer
  14. DOXORUBICIN [Suspect]
     Active Substance: DOXORUBICIN
     Route: 065
  15. DOXORUBICIN [Suspect]
     Active Substance: DOXORUBICIN
     Route: 065
  16. DOXORUBICIN [Suspect]
     Active Substance: DOXORUBICIN
  17. DOXORUBICIN HYDROCHLORIDE [Suspect]
     Active Substance: DOXORUBICIN HYDROCHLORIDE
     Indication: Breast cancer
  18. DOXORUBICIN HYDROCHLORIDE [Suspect]
     Active Substance: DOXORUBICIN HYDROCHLORIDE
     Indication: Metastasis
     Route: 065
  19. DOXORUBICIN HYDROCHLORIDE [Suspect]
     Active Substance: DOXORUBICIN HYDROCHLORIDE
     Route: 065
  20. DOXORUBICIN HYDROCHLORIDE [Suspect]
     Active Substance: DOXORUBICIN HYDROCHLORIDE
  21. TALAZOPARIB [Suspect]
     Active Substance: TALAZOPARIB
     Indication: Breast cancer
  22. TALAZOPARIB [Suspect]
     Active Substance: TALAZOPARIB
     Indication: Metastasis
     Route: 065
  23. TALAZOPARIB [Suspect]
     Active Substance: TALAZOPARIB
     Route: 065
  24. TALAZOPARIB [Suspect]
     Active Substance: TALAZOPARIB
  25. EXEMESTANE [Suspect]
     Active Substance: EXEMESTANE
     Indication: Breast cancer
  26. EXEMESTANE [Suspect]
     Active Substance: EXEMESTANE
     Indication: Metastasis
     Route: 065
  27. EXEMESTANE [Suspect]
     Active Substance: EXEMESTANE
     Route: 065
  28. EXEMESTANE [Suspect]
     Active Substance: EXEMESTANE
  29. PALBOCICLIB [Suspect]
     Active Substance: PALBOCICLIB
     Indication: Metastasis
  30. PALBOCICLIB [Suspect]
     Active Substance: PALBOCICLIB
     Route: 065
  31. PALBOCICLIB [Suspect]
     Active Substance: PALBOCICLIB
     Route: 065
  32. PALBOCICLIB [Suspect]
     Active Substance: PALBOCICLIB

REACTIONS (8)
  - Metastasis [Unknown]
  - Metastases to liver [Unknown]
  - Metastases to skin [Unknown]
  - Pneumonitis [Unknown]
  - Breast cancer [Unknown]
  - Malignant neoplasm progression [Unknown]
  - Metastases to bone [Unknown]
  - Neoplasm progression [Recovered/Resolved]

NARRATIVE: CASE EVENT DATE: 20200101
